FAERS Safety Report 22917825 (Version 3)
Quarter: 2023Q4

REPORT INFORMATION
  Report Type: Report from Study
  Country: CN (occurrence: CN)
  Receive Date: 20230907
  Receipt Date: 20231111
  Transmission Date: 20240109
  Serious: Yes (Hospitalization)
  Sender: FDA-Public Use
  Company Number: CN-PFIZER INC-PV202300150449

PATIENT
  Age: 40 Year
  Sex: Male
  Weight: 77 kg

DRUGS (20)
  1. CYTARABINE [Suspect]
     Active Substance: CYTARABINE
     Indication: Acute myeloid leukaemia
     Dosage: 1940 MG, 1X/DAY
     Route: 041
     Dates: start: 20230513, end: 20230517
  2. CYTARABINE [Suspect]
     Active Substance: CYTARABINE
     Dosage: 3760 MG, Q12H
     Route: 041
     Dates: start: 20230616, end: 20230616
  3. CYTARABINE [Suspect]
     Active Substance: CYTARABINE
     Dosage: 3760 MG, Q12H
     Route: 041
     Dates: start: 20230618, end: 20230618
  4. CYTARABINE [Suspect]
     Active Substance: CYTARABINE
     Dosage: 3760 MG, Q12H
     Route: 041
     Dates: start: 20230620, end: 20230620
  5. CYTARABINE [Suspect]
     Active Substance: CYTARABINE
     Dosage: 3840 MG, Q12H
     Route: 041
     Dates: start: 20230730, end: 20230730
  6. CYTARABINE [Suspect]
     Active Substance: CYTARABINE
     Dosage: 3840 MG, Q12H
     Route: 041
     Dates: start: 20230801, end: 20230801
  7. CYTARABINE [Suspect]
     Active Substance: CYTARABINE
     Dosage: 3840 MG, Q12H
     Route: 041
     Dates: start: 20230803, end: 20230803
  8. CYTARABINE [Suspect]
     Active Substance: CYTARABINE
     Dosage: 3960 MG, Q12H
     Route: 041
     Dates: start: 20230914, end: 20230914
  9. CYTARABINE [Suspect]
     Active Substance: CYTARABINE
     Dosage: 3960 MG, Q12H
     Route: 041
     Dates: start: 20230916, end: 20230916
  10. CYTARABINE [Suspect]
     Active Substance: CYTARABINE
     Dosage: 3960 MG, Q12H
     Route: 041
     Dates: start: 20230918, end: 20230918
  11. INVESTIGATIONAL PRODUCT [Suspect]
     Active Substance: INVESTIGATIONAL PRODUCT
     Indication: Acute myeloid leukaemia
     Dosage: UNK, 1X/DAY
     Route: 041
     Dates: start: 20230512, end: 20230512
  12. INVESTIGATIONAL PRODUCT [Suspect]
     Active Substance: INVESTIGATIONAL PRODUCT
     Dosage: UNK, Q12H
     Route: 041
     Dates: start: 20230513, end: 20230519
  13. INVESTIGATIONAL PRODUCT [Suspect]
     Active Substance: INVESTIGATIONAL PRODUCT
     Dosage: UNK, 1X/DAY
     Route: 041
     Dates: start: 20230615, end: 20230615
  14. INVESTIGATIONAL PRODUCT [Suspect]
     Active Substance: INVESTIGATIONAL PRODUCT
     Dosage: UNK, Q12H
     Route: 041
     Dates: start: 20230616, end: 20230622
  15. INVESTIGATIONAL PRODUCT [Suspect]
     Active Substance: INVESTIGATIONAL PRODUCT
     Dosage: UNK, 1X/DAY
     Route: 041
     Dates: start: 20230729, end: 20230729
  16. INVESTIGATIONAL PRODUCT [Suspect]
     Active Substance: INVESTIGATIONAL PRODUCT
     Dosage: UNK, Q12H
     Route: 041
     Dates: start: 20230730, end: 20230805
  17. INVESTIGATIONAL PRODUCT [Suspect]
     Active Substance: INVESTIGATIONAL PRODUCT
     Dosage: UNK, 1X/DAY
     Route: 041
     Dates: start: 20230913, end: 20230913
  18. INVESTIGATIONAL PRODUCT [Suspect]
     Active Substance: INVESTIGATIONAL PRODUCT
     Dosage: UNK, Q12H
     Route: 041
     Dates: start: 20230914, end: 20230920
  19. MITOXANTRONE [Suspect]
     Active Substance: MITOXANTRONE HYDROCHLORIDE
     Indication: Acute myeloid leukaemia
     Dosage: 12 MG, 1X/DAY, 25/12.5 MG/ML
     Route: 041
     Dates: start: 20230513, end: 20230517
  20. ETOPOSIDE [Suspect]
     Active Substance: ETOPOSIDE
     Indication: Acute myeloid leukaemia
     Dosage: 194 MG, 1X/DAY, 0.1/5 G/ML
     Route: 041
     Dates: start: 20230513, end: 20230515

REACTIONS (1)
  - Cardiac failure [Recovering/Resolving]

NARRATIVE: CASE EVENT DATE: 20230821
